FAERS Safety Report 4514600-1 (Version None)
Quarter: 2004Q3

REPORT INFORMATION
  Report Type: 
  Country: None (occurrence: None)
  Receive Date: 20040927
  Receipt Date: 20040430
  Transmission Date: 20050211
  Serious: No
  Sender: FDA-Public Use
  Company Number: US074781

PATIENT
  Age: 37 Year
  Sex: Female

DRUGS (4)
  1. NEULASTA [Suspect]
     Indication: CHEMOTHERAPY
     Dosage: 6 MG, 1 IN 1 DAYS
     Dates: start: 20040101
  2. CYCLOPHOSPHAMIDE [Concomitant]
  3. DOXORUBICIN HCL [Concomitant]
  4. FLUOROURACIL [Concomitant]

REACTIONS (4)
  - CHILLS [None]
  - DIZZINESS [None]
  - DYSPNOEA [None]
  - LEUKOCYTOSIS [None]
